FAERS Safety Report 23558709 (Version 1)
Quarter: 2024Q1

REPORT INFORMATION
  Report Type: Spontaneous
  Country: BR (occurrence: BR)
  Receive Date: 20240223
  Receipt Date: 20240223
  Transmission Date: 20240410
  Serious: Yes (Other)
  Sender: FDA-Public Use
  Company Number: BR-CHEPLA-2024002422

PATIENT
  Age: 63 Year
  Sex: Female
  Weight: 65 kg

DRUGS (13)
  1. CLONAZEPAM [Suspect]
     Active Substance: CLONAZEPAM
     Indication: Anxiety
     Dosage: 1 TABLET PER DAY (AT NIGHT)?DAILY DOSE: 1 DOSAGE FORM
     Route: 048
     Dates: start: 2019
  2. CLONAZEPAM [Suspect]
     Active Substance: CLONAZEPAM
     Indication: Depression
     Dosage: 1 TABLET PER DAY (AT NIGHT)?DAILY DOSE: 1 DOSAGE FORM
     Route: 048
     Dates: start: 2019
  3. CLONAZEPAM [Suspect]
     Active Substance: CLONAZEPAM
     Indication: Anxiety
     Dosage: 2 TABLETS OF RIVOTRIL 0.25 MG AT NIGHT?DAILY DOSE: 2 DOSAGE FORM
     Route: 060
  4. CLONAZEPAM [Suspect]
     Active Substance: CLONAZEPAM
     Indication: Depression
     Dosage: 2 TABLETS OF RIVOTRIL 0.25 MG AT NIGHT?DAILY DOSE: 2 DOSAGE FORM
     Route: 060
  5. CLONAZEPAM [Suspect]
     Active Substance: CLONAZEPAM
     Indication: Anxiety
     Dosage: RIVOTRIL 2.5 MG/ML EVERY NIGHT
  6. CLONAZEPAM [Suspect]
     Active Substance: CLONAZEPAM
     Indication: Depression
     Dosage: RIVOTRIL 2.5 MG/ML EVERY NIGHT
  7. VALDOXAN [Concomitant]
     Active Substance: AGOMELATINE
     Route: 048
  8. VALDOXAN [Concomitant]
     Active Substance: AGOMELATINE
     Dosage: PREVIOUSLY USED HALF OF IT, IN ADDITION TO RIVOTRIL 0.5 MG
     Route: 048
  9. CLONAZEPAM [Concomitant]
     Active Substance: CLONAZEPAM
     Indication: Tachycardia
     Dosage: DAILY (AT NIGHT)?DAILY DOSE: 1 DOSAGE FORM
     Route: 048
  10. CLONAZEPAM [Concomitant]
     Active Substance: CLONAZEPAM
     Indication: Anxiety
     Dosage: DAILY (AT NIGHT)?DAILY DOSE: 1 DOSAGE FORM
     Route: 048
  11. CLONAZEPAM [Concomitant]
     Active Substance: CLONAZEPAM
     Indication: Depression
     Dosage: DAILY (AT NIGHT)?DAILY DOSE: 1 DOSAGE FORM
     Route: 048
  12. CLONAZEPAM [Concomitant]
     Active Substance: CLONAZEPAM
     Indication: Blood pressure increased
     Dosage: DAILY (AT NIGHT)?DAILY DOSE: 1 DOSAGE FORM
     Route: 048
  13. LOSARTAN POTASSIUM [Concomitant]
     Active Substance: LOSARTAN POTASSIUM
     Indication: Panic attack
     Dosage: ONGOING
     Dates: start: 2017

REACTIONS (7)
  - Drug dependence [Not Recovered/Not Resolved]
  - Spinal disorder [Recovered/Resolved with Sequelae]
  - Intervertebral disc protrusion [Unknown]
  - Lethargy [Unknown]
  - Bradyphrenia [Unknown]
  - Condition aggravated [Not Recovered/Not Resolved]
  - Drug ineffective [Not Recovered/Not Resolved]

NARRATIVE: CASE EVENT DATE: 20220701
